FAERS Safety Report 7909198-1 (Version None)
Quarter: 2011Q4

REPORT INFORMATION
  Report Type: 
  Country: None (occurrence: None)
  Receive Date: 20111111
  Receipt Date: 20110727
  Transmission Date: 20120403
  Serious: No
  Sender: FDA-Public Use
  Company Number: US-GLAXOSMITHKLINE-A0938542A

PATIENT
  Age: 67 Year
  Sex: Female

DRUGS (3)
  1. COREG [Suspect]
     Indication: ATRIOVENTRICULAR BLOCK
     Dosage: 12.5MG TWICE PER DAY
     Route: 048
     Dates: start: 20110726
  2. XANAX [Concomitant]
  3. LEVOTHYROXINE SODIUM [Concomitant]

REACTIONS (2)
  - SENSORY DISTURBANCE [None]
  - DIZZINESS [None]
